FAERS Safety Report 4522522-5 (Version None)
Quarter: 2004Q4

REPORT INFORMATION
  Report Type: 
  Country: None (occurrence: None)
  Receive Date: 20041207
  Receipt Date: 20041123
  Transmission Date: 20050328
  Serious: Yes (Death)
  Sender: FDA-Public Use
  Company Number: EWC041141322

PATIENT
  Age: 77 Year
  Sex: Female
  Weight: 62 kg

DRUGS (3)
  1. FORTEO [Suspect]
     Indication: OSTEOPOROSIS
     Dosage: 20 UG/1 DAY
     Dates: start: 20040614
  2. SIMVACOR           (SIMVASTATIN RATIOPHARM) [Concomitant]
  3. FOSICOMBI [Concomitant]

REACTIONS (3)
  - FEELING ABNORMAL [None]
  - MYOCARDIAL INFARCTION [None]
  - SUDDEN DEATH [None]
